FAERS Safety Report 6723350-2 (Version None)
Quarter: 2010Q2

REPORT INFORMATION
  Report Type: 
  Country: None (occurrence: None)
  Receive Date: 20100513
  Receipt Date: 20100430
  Transmission Date: 20101027
  Serious: Yes (Hospitalization)
  Sender: FDA-Public Use
  Company Number: IT-CELGENEUS-083-20785-10050083

PATIENT
  Sex: Female
  Weight: 44 kg

DRUGS (1)
  1. THALIDOMIDE [Suspect]
     Indication: CROHN'S DISEASE
     Route: 048
     Dates: start: 20091015, end: 20100323

REACTIONS (3)
  - DYSARTHRIA [None]
  - HEADACHE [None]
  - SOPOR [None]
